FAERS Safety Report 7415039-1 (Version None)
Quarter: 2011Q2

REPORT INFORMATION
  Report Type: 
  Country: None (occurrence: None)
  Receive Date: 20110414
  Receipt Date: 20110406
  Transmission Date: 20111010
  Serious: Yes (Death, Hospitalization)
  Sender: FDA-Public Use
  Company Number: FR-ROCHE-761643

PATIENT
  Sex: Female
  Weight: 68 kg

DRUGS (1)
  1. CAPECITABINE [Suspect]
     Dosage: DATE OF LAST DOSE PRIOR TO SAE: 18 FEB 2011
     Route: 048
     Dates: start: 20110209

REACTIONS (1)
  - LABORATORY TEST ABNORMAL [None]
